FAERS Safety Report 4816356-1 (Version None)
Quarter: 2005Q4

REPORT INFORMATION
  Report Type: 
  Country: None (occurrence: None)
  Receive Date: 20051031
  Receipt Date: 20051027
  Transmission Date: 20060501
  Serious: Yes (Disabling)
  Sender: FDA-Public Use
  Company Number: FR-MERCK-0510FRA00086

PATIENT
  Age: 85 Year
  Sex: Male

DRUGS (3)
  1. ZOCOR [Suspect]
     Indication: HYPERCHOLESTEROLAEMIA
     Route: 048
     Dates: start: 20030101
  2. CLOPIDOGREL BISULFATE [Concomitant]
     Route: 048
     Dates: end: 20051001
  3. BISOPROLOL [Concomitant]
     Route: 048

REACTIONS (2)
  - PHLEBITIS [None]
  - TENDON RUPTURE [None]
